FAERS Safety Report 9076448 (Version 1)
Quarter: 2013Q1

REPORT INFORMATION
  Report Type: Report from Study
  Country: US (occurrence: US)
  Receive Date: 20130129
  Receipt Date: 20130129
  Transmission Date: 20140127
  Serious: No
  Sender: FDA-Public Use
  Company Number: US-ABBOTT-12P-163-0948775-00

PATIENT
  Age: 68 Year
  Sex: Female

DRUGS (15)
  1. HUMIRA 40 MG/0.8 ML PEN [Suspect]
     Indication: RHEUMATOID ARTHRITIS
  2. BENICAR [Concomitant]
     Indication: HYPERTENSION
     Dosage: 10MG AT BEDTIME
  3. BABY ASPIRIN [Concomitant]
     Indication: HYPERTENSION
  4. BABY ASPIRIN [Concomitant]
     Indication: THROMBOSIS
  5. NEXIUM [Concomitant]
     Indication: GASTROOESOPHAGEAL REFLUX DISEASE
     Dosage: 40MG DAILY
  6. VITAMIN D3 [Concomitant]
     Indication: OSTEOPOROSIS
     Dosage: 1000-2000 UNITS DAILY
  7. MEGA B-50 [Concomitant]
     Indication: VITAMIN SUPPLEMENTATION
     Dosage: 1 TAB DAILY
  8. FOLIC ACID [Concomitant]
     Indication: VITAMIN SUPPLEMENTATION
     Dosage: 1MG DAILY
  9. FOLIC ACID [Concomitant]
     Indication: UNEVALUABLE EVENT
  10. CENTRUM SILVER [Concomitant]
     Indication: VITAMIN SUPPLEMENTATION
     Dosage: DAILY
  11. ALPRAZOLAM [Concomitant]
     Indication: INSOMNIA
     Dosage: 0.25MG DAILY
  12. AMITRIPTYLINE [Concomitant]
     Indication: INSOMNIA
     Dosage: 10MG DAILY
  13. TRILIPIX [Concomitant]
     Indication: BLOOD CHOLESTEROL INCREASED
     Dosage: 135MG DAILY
  14. CRESTOR [Concomitant]
     Indication: BLOOD CHOLESTEROL INCREASED
  15. ESTRACE [Concomitant]
     Indication: MENOPAUSAL SYMPTOMS

REACTIONS (4)
  - Osteoporosis [Unknown]
  - Injection site pain [Not Recovered/Not Resolved]
  - Device malfunction [Unknown]
  - Incorrect dose administered [Unknown]
